FAERS Safety Report 5383420-0 (Version None)
Quarter: 2007Q3

REPORT INFORMATION
  Report Type: 
  Country: None (occurrence: None)
  Receive Date: 20070710
  Receipt Date: 20070704
  Transmission Date: 20080115
  Serious: Yes (Other)
  Sender: FDA-Public Use
  Company Number: FR-GILEAD-2007-0012270

PATIENT
  Sex: Male
  Weight: 72 kg

DRUGS (4)
  1. TRUVADA [Suspect]
     Indication: HIV INFECTION
     Route: 048
     Dates: start: 20070503, end: 20070516
  2. TRUVADA [Suspect]
     Dates: start: 20070607
  3. KALETRA [Suspect]
     Indication: HIV INFECTION
     Route: 048
     Dates: start: 20070503, end: 20070516
  4. SUSTIVA [Suspect]
     Dates: start: 20070607

REACTIONS (1)
  - RHABDOMYOLYSIS [None]
